FAERS Safety Report 8661907 (Version 2)
Quarter: 2013Q4

REPORT INFORMATION
  Report Type: Spontaneous
  Country: JP (occurrence: JP)
  Receive Date: 20120712
  Receipt Date: 20131105
  Transmission Date: 20140711
  Serious: Yes (Death)
  Sender: FDA-Public Use
  Company Number: JP-MSD-1204USA03552

PATIENT
  Age: 64 Year
  Sex: Female
  Weight: 39 kg

DRUGS (2)
  1. TIENAM IV [Suspect]
     Indication: PNEUMONIA
     Dosage: 0.5 G, QD
     Route: 042
     Dates: start: 20120417, end: 20120417
  2. DEPAKENE [Concomitant]
     Indication: MANIA
     Dosage: DAILY DOSAGE UNKNOWN
     Dates: end: 20120406

REACTIONS (2)
  - Grand mal convulsion [Fatal]
  - Pneumonia [Fatal]
